FAERS Safety Report 17435276 (Version 1)
Quarter: 2020Q1

REPORT INFORMATION
  Report Type: Spontaneous
  Country: HR (occurrence: HR)
  Receive Date: 20200219
  Receipt Date: 20200219
  Transmission Date: 20200409
  Serious: Yes (Other)
  Sender: FDA-Public Use
  Company Number: NVSC2020HR039194

PATIENT
  Age: 4 Decade
  Sex: Female

DRUGS (2)
  1. OLANZAPINE. [Suspect]
     Active Substance: OLANZAPINE
     Indication: SCHIZOPHRENIA
     Dosage: 10 MG, QD (0,0,1)
     Route: 065
  2. XEPLION [Suspect]
     Active Substance: PALIPERIDONE PALMITATE
     Indication: SCHIZOPHRENIA
     Dosage: 100 MG, Q4W
     Route: 030
     Dates: start: 201809

REACTIONS (3)
  - Hyperprolactinaemia [Unknown]
  - Menstruation irregular [Unknown]
  - Weight increased [Unknown]

NARRATIVE: CASE EVENT DATE: 201812
